FAERS Safety Report 5523196-7 (Version None)
Quarter: 2007Q4

REPORT INFORMATION
  Report Type: 
  Country: None (occurrence: None)
  Receive Date: 20071116
  Receipt Date: 20071116
  Transmission Date: 20080405
  Serious: No
  Sender: FDA-Public Use
  Company Number: None

PATIENT
  Age: 59 Year
  Sex: Female
  Weight: 81.6475 kg

DRUGS (2)
  1. ACTONEL [Suspect]
     Dosage: 1 PER WEEK WEEKLY PO
     Route: 048
     Dates: start: 20050101, end: 20071117
  2. FOSAMAX [Suspect]
     Dosage: 1 PER WEEK WEEKLY PO
     Route: 048
     Dates: start: 20021231, end: 20051231

REACTIONS (1)
  - HEART RATE IRREGULAR [None]
